FAERS Safety Report 11576613 (Version 1)
Quarter: 2015Q3

REPORT INFORMATION
  Report Type: Spontaneous
  Country: US (occurrence: US)
  Receive Date: 20150916
  Receipt Date: 20150916
  Transmission Date: 20151125
  Serious: No
  Sender: FDA-Public Use
  Company Number: US-ELI_LILLY_AND_COMPANY-US201305006637

PATIENT
  Sex: Female
  Weight: 107.94 kg

DRUGS (3)
  1. ENBREL [Suspect]
     Active Substance: ETANERCEPT
     Dosage: UNK
  2. LEFLUNOMIDE. [Suspect]
     Active Substance: LEFLUNOMIDE
     Dosage: UNK
  3. HUMALOG [Suspect]
     Active Substance: INSULIN LISPRO
     Route: 058

REACTIONS (7)
  - Infusion site ulcer [Unknown]
  - Infection [Unknown]
  - Urinary tract infection [Unknown]
  - Cystitis [Unknown]
  - Injection site injury [Unknown]
  - Infusion site irritation [Unknown]
  - Infusion site erythema [Not Recovered/Not Resolved]
